FAERS Safety Report 23078833 (Version 1)
Quarter: 2023Q4

REPORT INFORMATION
  Report Type: Spontaneous
  Country: US (occurrence: None)
  Receive Date: 20231017
  Receipt Date: 20231017
  Transmission Date: 20240110
  Serious: Yes (Other)
  Sender: FDA-Public Use
  Company Number: None

PATIENT
  Age: 47 Year
  Sex: Male
  Weight: 166.5 kg

DRUGS (8)
  1. PREGABALIN [Suspect]
     Active Substance: PREGABALIN
     Indication: Rheumatoid arthritis
  2. duoloxitine [Concomitant]
  3. entrestro [Concomitant]
  4. spirnolactone [Concomitant]
  5. carvedloil [Concomitant]
  6. FLUOXETINE [Concomitant]
     Active Substance: FLUOXETINE HYDROCHLORIDE
  7. XELJANZ [Concomitant]
     Active Substance: TOFACITINIB CITRATE
  8. ARAVA [Concomitant]
     Active Substance: LEFLUNOMIDE

REACTIONS (4)
  - Peripheral swelling [None]
  - Cardiac failure congestive [None]
  - Deep vein thrombosis [None]
  - Pain in extremity [None]

NARRATIVE: CASE EVENT DATE: 20231017
